FAERS Safety Report 20824041 (Version 4)
Quarter: 2022Q3

REPORT INFORMATION
  Report Type: Spontaneous
  Country: CA (occurrence: CA)
  Receive Date: 20220513
  Receipt Date: 20220705
  Transmission Date: 20221027
  Serious: Yes (Other)
  Sender: FDA-Public Use
  Company Number: CA-CELLTRION INC.-2022CA005914

PATIENT

DRUGS (6)
  1. INFLECTRA [Suspect]
     Active Substance: INFLIXIMAB-DYYB
     Indication: Psoriatic arthropathy
     Dosage: 500 MG, 0, 2 AND 6, THEN EVERY 8 WEEKS
     Route: 042
     Dates: start: 20220204, end: 20220321
  2. INFLECTRA [Suspect]
     Active Substance: INFLIXIMAB-DYYB
     Dosage: 500 MG, 0, 2 AND 6, THEN EVERY 8 WEEKS
     Route: 042
     Dates: start: 20220217
  3. INFLECTRA [Suspect]
     Active Substance: INFLIXIMAB-DYYB
     Dosage: 500 MG, 0, 2 AND 6, THEN EVERY 8 WEEKS
     Route: 042
     Dates: start: 20210321
  4. INFLECTRA [Suspect]
     Active Substance: INFLIXIMAB-DYYB
     Dosage: 500 MG, 0, 2 AND 6, THEN EVERY 8 WEEKS
     Route: 042
     Dates: start: 20220321
  5. INFLECTRA [Suspect]
     Active Substance: INFLIXIMAB-DYYB
     Dosage: 500 MG, EVERY 6 WEEKS
     Route: 042
     Dates: start: 20220502
  6. CELEBREX [Concomitant]
     Active Substance: CELECOXIB
     Dosage: 1 DF DOSAGE NOT AVAILABLE
     Route: 065

REACTIONS (6)
  - Condition aggravated [Unknown]
  - Drug ineffective [Unknown]
  - Arthralgia [Not Recovered/Not Resolved]
  - Off label use [Unknown]
  - Off label use [Unknown]
  - Intentional product use issue [Unknown]

NARRATIVE: CASE EVENT DATE: 20220101
